FAERS Safety Report 18506134 (Version 2)
Quarter: 2021Q1

REPORT INFORMATION
  Report Type: Spontaneous
  Country: US (occurrence: US)
  Receive Date: 20201116
  Receipt Date: 20210201
  Transmission Date: 20210419
  Serious: Yes (Other)
  Sender: FDA-Public Use
  Company Number: US-PRINSTON PHARMACEUTICAL INC.-2020PRN00359

PATIENT
  Age: 77 Year
  Sex: Female
  Weight: 67.57 kg

DRUGS (4)
  1. LISINOPRIL. [Suspect]
     Active Substance: LISINOPRIL
     Dosage: 20 MG, 2X/DAY
     Route: 048
     Dates: start: 20200906, end: 202009
  2. COREG [Concomitant]
     Active Substance: CARVEDILOL
     Dosage: UNK
     Dates: start: 2007
  3. LISINOPRIL. [Suspect]
     Active Substance: LISINOPRIL
     Indication: HYPERTENSION
     Dosage: 20 MG, 2X/DAY
     Route: 048
  4. LISINOPRIL. [Suspect]
     Active Substance: LISINOPRIL
     Dosage: 10 MG, 2X/DAY
     Route: 048
     Dates: start: 202009, end: 202009

REACTIONS (9)
  - Burning sensation [Unknown]
  - Oral pruritus [Unknown]
  - Drug ineffective [Recovered/Resolved]
  - Unevaluable event [Not Recovered/Not Resolved]
  - Squamous cell carcinoma of skin [Unknown]
  - Pruritus [Unknown]
  - Photodermatosis [Unknown]
  - Allergic reaction to excipient [Unknown]
  - Oral discomfort [Unknown]

NARRATIVE: CASE EVENT DATE: 2018
